FAERS Safety Report 10219011 (Version 1)
Quarter: 2014Q2

REPORT INFORMATION
  Report Type: Spontaneous
  Country: IN (occurrence: None)
  Receive Date: 20140603
  Receipt Date: 20140603
  Transmission Date: 20141212
  Serious: Yes (Hospitalization)
  Sender: FDA-Public Use
  Company Number: 7295198

PATIENT
  Age: 65 Year
  Sex: Female

DRUGS (1)
  1. LEVOTHYROXINE (LEVOTHYROXINE) (LEVOTHYROXINE SODIUM) [Suspect]
     Indication: HYPOTHYROIDISM
     Route: 048

REACTIONS (5)
  - Richter^s hernia [None]
  - Incorrect dose administered [None]
  - Cachexia [None]
  - Gastrointestinal necrosis [None]
  - Peritonitis [None]
